FAERS Safety Report 5177125-9 (Version None)
Quarter: 2006Q4

REPORT INFORMATION
  Report Type: 
  Country: None (occurrence: None)
  Receive Date: 20061207
  Receipt Date: 20061127
  Transmission Date: 20070319
  Serious: Yes (Hospitalization, Other)
  Sender: FDA-Public Use
  Company Number: HQWYE488827NOV06

PATIENT
  Age: 42 Year
  Sex: Female
  Weight: 76.27 kg

DRUGS (5)
  1. PREMARIN (CONJUGATED ESTRONGES, TABLET, 0.625 MG) [Suspect]
     Indication: HORMONE REPLACEMENT THERAPY
     Dosage: 0.625 MG 1X PER 1 DAY, ORAL
     Route: 048
     Dates: start: 19920101
  2. ACETAMINOPHEN [Concomitant]
  3. SINGULAIR [Concomitant]
  4. SOMA [Concomitant]
  5. TYLENOL W/ CODEINE NO. 3 [Concomitant]

REACTIONS (5)
  - GASTROENTERITIS [None]
  - GASTROINTESTINAL HAEMORRHAGE [None]
  - HEPATIC STEATOSIS [None]
  - HEPATOMEGALY [None]
  - INTESTINAL ISCHAEMIA [None]
